FAERS Safety Report 7395122-X (Version None)
Quarter: 2011Q2

REPORT INFORMATION
  Report Type: 
  Country: None (occurrence: None)
  Receive Date: 20110405
  Receipt Date: 20110322
  Transmission Date: 20111010
  Serious: Yes (Other)
  Sender: FDA-Public Use
  Company Number: PHHY2011US15108

PATIENT
  Sex: Male
  Weight: 112 kg

DRUGS (7)
  1. TASIGNA [Suspect]
     Indication: CHRONIC MYELOID LEUKAEMIA
     Dosage: 300 MG, BID
     Route: 048
     Dates: start: 20101108, end: 20110125
  2. LASIX [Concomitant]
     Indication: OEDEMA
     Dosage: 40 MG, QD
     Route: 048
  3. GLYBURIDE [Concomitant]
     Indication: DIABETES MELLITUS
     Dosage: 10 MG, BID
     Route: 048
  4. ALLOPURINOL [Concomitant]
     Dosage: 300 MG, QD
     Route: 048
     Dates: start: 20101026
  5. NOVOLOG [Concomitant]
     Indication: DIABETES MELLITUS
     Route: 058
  6. HYDREA [Concomitant]
     Indication: LEUKOCYTOSIS
     Dosage: 500 MG, BID
     Route: 048
     Dates: start: 20101026, end: 20101118
  7. PRILOSEC [Concomitant]
     Dosage: 40 MG, QD
     Route: 048

REACTIONS (4)
  - RASH GENERALISED [None]
  - THROAT IRRITATION [None]
  - DYSPHAGIA [None]
  - DYSPNOEA [None]
